FAERS Safety Report 9506133 (Version 1)
Quarter: 2013Q1

REPORT INFORMATION
  Report Type: Spontaneous
  Country: US (occurrence: None)
  Receive Date: 20130305
  Receipt Date: 20130305
  Transmission Date: 20140127
  Serious: Yes (Other)
  Sender: FDA-Public Use
  Company Number: 163-21880-11093389

PATIENT
  Age: 76 Year
  Sex: Female
  Weight: 67.13 kg

DRUGS (1)
  1. REVLIMID [Suspect]
     Indication: PLASMA CELL MYELOMA
     Dosage: 1 IN 1 D
     Route: 048
     Dates: start: 20101013, end: 2011

REACTIONS (2)
  - Pancytopenia [None]
  - Platelet count decreased [None]
